FAERS Safety Report 5386073-0 (Version None)
Quarter: 2007Q3

REPORT INFORMATION
  Report Type: 
  Country: None (occurrence: None)
  Receive Date: 20070710
  Receipt Date: 20070629
  Transmission Date: 20080115
  Serious: Yes (Hospitalization)
  Sender: FDA-Public Use
  Company Number: TPA2007A01340

PATIENT
  Sex: Female

DRUGS (2)
  1. PIOGLITAZONE HCL [Suspect]
     Indication: CARDIOVASCULAR EVENT PROPHYLAXIS
     Dosage: 1 IN 1 D, PER ORAL
     Route: 048
     Dates: start: 20070310
  2. PIOGLITAZONE HCL [Suspect]
     Indication: CEREBROVASCULAR ACCIDENT PROPHYLAXIS
     Dosage: 1 IN 1 D, PER ORAL
     Route: 048
     Dates: start: 20070310

REACTIONS (3)
  - FALL [None]
  - PELVIC FRACTURE [None]
  - WRIST FRACTURE [None]
